FAERS Safety Report 8950266 (Version 1)
Quarter: 2012Q4

REPORT INFORMATION
  Report Type: 
  Country: US (occurrence: US)
  Receive Date: 20121205
  Receipt Date: 20121205
  Transmission Date: 20130627
  Serious: Yes (Other)
  Sender: FDA-Public Use
  Company Number: CHPA2012US023984

PATIENT
  Age: 77 Year
  Sex: Female

DRUGS (1)
  1. BENEFIBER ORANGE POWDER [Suspect]
     Indication: BOWEL MOVEMENT IRREGULARITY
     Dosage: 2 TSP, TID
     Route: 048
     Dates: start: 2008, end: 2010

REACTIONS (3)
  - Gallbladder disorder [Recovered/Resolved]
  - Cholelithiasis [Recovered/Resolved]
  - Off label use [Unknown]
